FAERS Safety Report 4746725-X (Version None)
Quarter: 2005Q3

REPORT INFORMATION
  Report Type: 
  Country: None (occurrence: None)
  Receive Date: 20050817
  Receipt Date: 20050726
  Transmission Date: 20060218
  Serious: Yes (Hospitalization)
  Sender: FDA-Public Use
  Company Number: JP-GLAXOSMITHKLINE-B0389125A

PATIENT
  Age: 77 Year
  Sex: Male

DRUGS (4)
  1. VALTREX [Suspect]
     Indication: HERPES ZOSTER
     Dosage: 1000MG THREE TIMES PER DAY
     Route: 048
     Dates: start: 20050622, end: 20050627
  2. CYANOCOBALAMIN [Concomitant]
     Indication: HERPES ZOSTER
     Dosage: 500MCG THREE TIMES PER DAY
     Route: 048
     Dates: end: 20050627
  3. SELBEX [Concomitant]
     Dosage: 3 PER DAY
     Route: 048
     Dates: end: 20050627
  4. WARFARIN [Concomitant]
     Indication: HYPERTENSION
     Route: 048

REACTIONS (5)
  - DECREASED APPETITE [None]
  - GAIT DISTURBANCE [None]
  - HEADACHE [None]
  - RENAL FAILURE ACUTE [None]
  - VOMITING [None]
